FAERS Safety Report 9557768 (Version 1)
Quarter: 2013Q3

REPORT INFORMATION
  Report Type: Spontaneous
  Country: DE (occurrence: DE)
  Receive Date: 20130926
  Receipt Date: 20130926
  Transmission Date: 20140515
  Serious: Yes (Other)
  Sender: FDA-Public Use
  Company Number: GXKR2013DE003081

PATIENT
  Sex: 0

DRUGS (5)
  1. HYDROCHLOROTHIAZIDE,VALSARTAN [Suspect]
     Indication: HYPERTENSION
     Dosage: 1 DF, QD
     Route: 048
     Dates: start: 201301, end: 20130910
  2. ALPRAZOLAM [Concomitant]
     Indication: PANIC DISORDER
     Dosage: 0.5 MG, BID (INTAKE FOR MORE THAN 5 YEARS)
     Route: 048
  3. CARVEDILOL [Concomitant]
     Indication: HYPERTENSION
     Dosage: DAILY DOSE: 50 MG MILLGRAM(S) EVERY DAYS
     Route: 048
     Dates: start: 201301
  4. CITALOPRAM [Concomitant]
     Indication: DEPRESSION
     Dosage: 10 MG, BID
     Route: 048
  5. METOPROLOL [Concomitant]
     Indication: PALPITATIONS
     Dosage: 0.5-0-1 (INTAKE FOR MORE THAN 5 YEARS)
     Route: 048

REACTIONS (4)
  - Butterfly rash [Recovering/Resolving]
  - Skin tightness [Recovering/Resolving]
  - Skin mass [Recovering/Resolving]
  - Myalgia [Recovering/Resolving]
